FAERS Safety Report 4627497-6 (Version None)
Quarter: 2005Q1

REPORT INFORMATION
  Report Type: 
  Country: None (occurrence: None)
  Receive Date: 20050330
  Receipt Date: 20020409
  Transmission Date: 20050727
  Serious: No
  Sender: FDA-Public Use
  Company Number: 3577

PATIENT
  Age: 67 Year
  Sex: Male

DRUGS (4)
  1. MIDAZOLAM HCL [Suspect]
     Indication: SEDATION
     Dosage: 12 MG IT
     Route: 037
  2. BUPIVACAINE [Concomitant]
  3. ISOSORBIDE [Concomitant]
  4. DIGOXIN [Concomitant]

REACTIONS (4)
  - DISORIENTATION [None]
  - DYSKINESIA [None]
  - PARADOXICAL DRUG REACTION [None]
  - RESTLESSNESS [None]
